FAERS Safety Report 21656612 (Version 1)
Quarter: 2022Q4

REPORT INFORMATION
  Report Type: Spontaneous
  Country: JP (occurrence: JP)
  Receive Date: 20221129
  Receipt Date: 20221129
  Transmission Date: 20230113
  Serious: Yes (Hospitalization, Other)
  Sender: FDA-Public Use
  Company Number: JP-ASPEN-JPL2021JP000159AA

PATIENT
  Age: 74 Year
  Sex: Female
  Weight: 44 kg

DRUGS (6)
  1. ADRIACIN [Suspect]
     Active Substance: DOXORUBICIN HYDROCHLORIDE
     Indication: Peripheral T-cell lymphoma unspecified
     Dosage: 50 MG/M2, UNKNOWN
     Route: 065
     Dates: start: 201702
  2. GEMCITABINE [Suspect]
     Active Substance: GEMCITABINE
     Indication: Peripheral T-cell lymphoma unspecified
     Dosage: 1000 MG/M2, UNKNOWN
     Route: 065
  3. DEXAMETHASONE [Suspect]
     Active Substance: DEXAMETHASONE
     Indication: Peripheral T-cell lymphoma unspecified
     Dosage: 20 MG, UNKNOWN
     Route: 065
  4. CYCLOPHOSPHAMIDE [Suspect]
     Active Substance: CYCLOPHOSPHAMIDE
     Indication: Peripheral T-cell lymphoma unspecified
     Dosage: 750 MG/M2, UNKNOWN
     Route: 065
     Dates: start: 201702
  5. VINCRISTINE [Suspect]
     Active Substance: VINCRISTINE
     Indication: Peripheral T-cell lymphoma unspecified
     Dosage: 1.4 MG/M2, UNKNOWN
     Route: 065
     Dates: start: 201702
  6. PREDNISOLONE [Suspect]
     Active Substance: PREDNISOLONE
     Indication: Peripheral T-cell lymphoma unspecified
     Dosage: 50 MG, UNKNOWN
     Route: 065
     Dates: start: 201702

REACTIONS (4)
  - Paraneoplastic pemphigus [Recovering/Resolving]
  - Peripheral T-cell lymphoma unspecified [Unknown]
  - Condition aggravated [Unknown]
  - Product use in unapproved indication [Unknown]
